FAERS Safety Report 8172957-7 (Version None)
Quarter: 2012Q1

REPORT INFORMATION
  Report Type: 
  Country: None (occurrence: None)
  Receive Date: 20120229
  Receipt Date: 20120218
  Transmission Date: 20120608
  Serious: Yes (Other)
  Sender: FDA-Public Use
  Company Number: US-BAYER-2011-063065

PATIENT
  Age: 22 Year
  Sex: Female
  Weight: 61.224 kg

DRUGS (12)
  1. PROMETHAZINE [Concomitant]
     Dosage: 25 MG, UNK
  2. NEXIUM [Concomitant]
  3. NUVARING [Concomitant]
     Indication: CONTRACEPTION
     Dosage: UNK
     Dates: start: 20100916, end: 20110715
  4. HYDROCODONE [Concomitant]
  5. ALBUTEROL [Concomitant]
  6. RANITIDINE [Concomitant]
  7. TRAZODONE HCL [Concomitant]
     Dosage: 50 MG, UNK
  8. DEXAMETHASONE [Concomitant]
     Dosage: 0.5 MG, UNK
  9. YASMIN [Suspect]
     Indication: PRODUCT USED FOR UNKNOWN INDICATION
     Dosage: UNK
     Dates: start: 20081114, end: 20091101
  10. PROAIR HFA [Concomitant]
     Indication: ASTHMA EXERCISE INDUCED
  11. ONDANSETRON [Concomitant]
     Dosage: 4 MG, UNK
  12. HYOSCYAMINE [Concomitant]

REACTIONS (9)
  - CHOLECYSTITIS CHRONIC [None]
  - PAIN [None]
  - INJURY [None]
  - BILIARY DYSKINESIA [None]
  - EMOTIONAL DISTRESS [None]
  - ANXIETY [None]
  - GALLBLADDER INJURY [None]
  - SCAR [None]
  - GENERAL PHYSICAL HEALTH DETERIORATION [None]
